FAERS Safety Report 6016368-9 (Version None)
Quarter: 2008Q4

REPORT INFORMATION
  Report Type: 
  Country: None (occurrence: None)
  Receive Date: 20081222
  Receipt Date: 20081215
  Transmission Date: 20090506
  Serious: Yes (Death)
  Sender: FDA-Public Use
  Company Number: US-PFIZER INC-2008153336

PATIENT
  Age: 53 Year
  Sex: Female

DRUGS (7)
  1. CLINDAMYCIN HCL [Suspect]
  2. ASPIRIN [Suspect]
  3. VENLAFAXINE [Suspect]
  4. FLUOXETINE [Suspect]
  5. PROCHLORPERAZINE [Suspect]
  6. ACETAMINOPHEN AND HYDROCODONE BITARTRATE [Suspect]
  7. OMEPRAZOLE [Suspect]

REACTIONS (1)
  - COMPLETED SUICIDE [None]
